FAERS Safety Report 9846293 (Version 2)
Quarter: 2014Q1

REPORT INFORMATION
  Report Type: Spontaneous
  Country: CA (occurrence: CA)
  Receive Date: 20140127
  Receipt Date: 20140206
  Transmission Date: 20141002
  Serious: Yes (Death)
  Sender: FDA-Public Use
  Company Number: CA-BAYER-2014-012506

PATIENT
  Sex: Male

DRUGS (2)
  1. HELIXATE FS [Suspect]
     Indication: HAEMOPHILIA
  2. BERIPLEX [Suspect]
     Indication: PROCEDURAL HAEMORRHAGE

REACTIONS (2)
  - Haemorrhage [Fatal]
  - Drug ineffective [Fatal]
